FAERS Safety Report 6493744-1 (Version None)
Quarter: 2009Q4

REPORT INFORMATION
  Report Type: 
  Country: None (occurrence: None)
  Receive Date: 20091214
  Receipt Date: 20081215
  Transmission Date: 20100525
  Serious: No
  Sender: FDA-Public Use
  Company Number: US-BRISTOL-MYERS SQUIBB COMPANY-14189609

PATIENT
  Age: 29 Year
  Sex: Female

DRUGS (3)
  1. ABILIFY [Suspect]
     Indication: PSYCHOTIC DISORDER
     Dosage: ALSO TAKEN 10MG PER DAY PREVIOUSLY
  2. ABILIFY [Suspect]
     Indication: DELUSION
     Dosage: ALSO TAKEN 10MG PER DAY PREVIOUSLY
  3. CELEXA [Concomitant]

REACTIONS (2)
  - DYSARTHRIA [None]
  - SALIVARY HYPERSECRETION [None]
